FAERS Safety Report 10225698 (Version 2)
Quarter: 2014Q2

REPORT INFORMATION
  Report Type: Spontaneous
  Country: US (occurrence: US)
  Receive Date: 20140609
  Receipt Date: 20140609
  Transmission Date: 20141212
  Serious: Yes (Hospitalization)
  Sender: FDA-Public Use
  Company Number: US-ASTELLAS-2013US010295

PATIENT
  Age: 22 Year
  Sex: Female

DRUGS (1)
  1. PROGRAF [Suspect]
     Indication: RENAL TRANSPLANT
     Dosage: 2 MG AM / 1 MG PM
     Route: 048
     Dates: start: 20080820

REACTIONS (4)
  - Bacterial infection [Unknown]
  - Urinary tract infection [Unknown]
  - Galactorrhoea [Unknown]
  - Breast discharge [Unknown]
